FAERS Safety Report 8581541 (Version 4)
Quarter: 2014Q1

REPORT INFORMATION
  Report Type: Spontaneous
  Country: AR (occurrence: AR)
  Receive Date: 20120525
  Receipt Date: 20140324
  Transmission Date: 20141002
  Serious: Yes (Death, Hospitalization)
  Sender: FDA-Public Use
  Company Number: AR-ROCHE-1071720

PATIENT
  Age: 68 Year
  Sex: Female

DRUGS (2)
  1. XOLAIR [Suspect]
     Indication: ASTHMA
     Route: 065
     Dates: start: 2008
  2. SERETIDE [Concomitant]
     Indication: NASOPHARYNGITIS

REACTIONS (3)
  - Dermal cyst [Recovering/Resolving]
  - Colon cancer [Fatal]
  - Haemorrhage [Fatal]
